FAERS Safety Report 7610577-0 (Version None)
Quarter: 2011Q3

REPORT INFORMATION
  Report Type: 
  Country: None (occurrence: None)
  Receive Date: 20110707
  Receipt Date: 20110622
  Transmission Date: 20111222
  Serious: Yes (Other)
  Sender: FDA-Public Use
  Company Number: LMI-2011-00527

PATIENT
  Age: 64 Year
  Sex: Male
  Weight: 112.4921 kg

DRUGS (5)
  1. DEFINITY [Suspect]
     Indication: CHEST PAIN
     Dosage: SEE IMAGE
     Route: 042
     Dates: start: 20110622, end: 20110622
  2. DEFINITY [Suspect]
     Indication: CARDIAC STRESS TEST
     Dosage: SEE IMAGE
     Route: 042
     Dates: start: 20110622, end: 20110622
  3. DEFINITY [Suspect]
     Indication: CHEST PAIN
     Dosage: SEE IMAGE
     Route: 042
     Dates: start: 20110622, end: 20110622
  4. DEFINITY [Suspect]
     Indication: CARDIAC STRESS TEST
     Dosage: SEE IMAGE
     Route: 042
     Dates: start: 20110622, end: 20110622
  5. PRILOSEC [Concomitant]

REACTIONS (5)
  - NECK PAIN [None]
  - UNRESPONSIVE TO STIMULI [None]
  - VENTRICULAR EXTRASYSTOLES [None]
  - DYSPNOEA [None]
  - HYPERTENSION [None]
